FAERS Safety Report 6112092-2 (Version None)
Quarter: 2009Q1

REPORT INFORMATION
  Report Type: 
  Country: None (occurrence: None)
  Receive Date: 20090311
  Receipt Date: 20090304
  Transmission Date: 20090719
  Serious: Yes (Life-Threatening, Hospitalization)
  Sender: FDA-Public Use
  Company Number: US-GILEAD-2009-0020644

PATIENT
  Sex: Female

DRUGS (10)
  1. LETAIRIS [Suspect]
     Indication: PULMONARY ARTERIAL HYPERTENSION
     Dates: start: 20090217
  2. ATENOLOL [Concomitant]
  3. METOLAZONE [Concomitant]
  4. LASIX [Concomitant]
  5. TRAZODONE HCL [Concomitant]
  6. LANTUS [Concomitant]
  7. REQUIP [Concomitant]
  8. LORAZEPAM [Concomitant]
  9. ALPRAZOLAM [Concomitant]
  10. DOCUSATE SODIUM [Concomitant]

REACTIONS (1)
  - HYPERSENSITIVITY [None]
